FAERS Safety Report 8594233-0 (Version None)
Quarter: 2012Q3

REPORT INFORMATION
  Report Type: 
  Country: None (occurrence: None)
  Receive Date: 20120814
  Receipt Date: 20110527
  Transmission Date: 20120928
  Serious: Yes (Hospitalization, Other)
  Sender: FDA-Public Use
  Company Number: PHBS2007BR05575

PATIENT
  Sex: Female
  Weight: 90 kg

DRUGS (5)
  1. PROPYL-THIOURACIL [Concomitant]
     Indication: THYROID DISORDER
     Dosage: 2 DF, UNK
     Route: 048
  2. FORMOTEROL FUMARATE [Suspect]
     Indication: ASTHMA
     Dosage: 2 DF,(2 CAPSULES DAILY TREATMENT 1 AND 2 TWICE DAILY, WITH THE ACTIVE INGREDIENTS TOGETHER AND TREAT
  3. DILTIAZEM [Concomitant]
     Indication: HYPERTENSION
     Dosage: 2 DF, UNK
     Route: 048
  4. LIPITOR [Concomitant]
     Indication: BLOOD CHOLESTEROL
     Dosage: 1 DF, UNK
     Route: 048
  5. ZESTRIL [Concomitant]
     Indication: HEART RATE INCREASED
     Dosage: 1 DF, UNK
     Route: 048

REACTIONS (5)
  - DYSPNOEA [None]
  - LUNG NEOPLASM MALIGNANT [None]
  - EXPIRED DRUG ADMINISTERED [None]
  - DRUG INEFFECTIVE [None]
  - HAEMORRHAGE [None]
